FAERS Safety Report 24194111 (Version 1)
Quarter: 2024Q3

REPORT INFORMATION
  Report Type: Spontaneous
  Country: US (occurrence: US)
  Receive Date: 20240809
  Receipt Date: 20240809
  Transmission Date: 20241017
  Serious: Yes (Other)
  Sender: MYLAN
  Company Number: US-MYLANLABS-2024M1073755

PATIENT
  Age: 7 Year
  Sex: Male

DRUGS (4)
  1. LEVETIRACETAM [Suspect]
     Active Substance: LEVETIRACETAM
     Indication: Epilepsia partialis continua
     Dosage: UNK
     Route: 065
  2. OXCARBAZEPINE [Suspect]
     Active Substance: OXCARBAZEPINE
     Indication: Epilepsia partialis continua
     Dosage: UNK
     Route: 065
  3. LACOSAMIDE [Suspect]
     Active Substance: LACOSAMIDE
     Indication: Epilepsia partialis continua
     Dosage: UNK
     Route: 065
  4. FOSPHENYTOIN [Suspect]
     Active Substance: FOSPHENYTOIN
     Indication: Epilepsia partialis continua
     Dosage: UNK
     Route: 065

REACTIONS (1)
  - Drug ineffective [Unknown]
